FAERS Safety Report 8933967 (Version 3)
Quarter: 2013Q4

REPORT INFORMATION
  Report Type: Spontaneous
  Country: BR (occurrence: BR)
  Receive Date: 20121129
  Receipt Date: 20131018
  Transmission Date: 20140711
  Serious: No
  Sender: FDA-Public Use
  Company Number: BR-PFIZER INC-2012297044

PATIENT
  Age: 30 Year
  Sex: Female

DRUGS (3)
  1. EVANOR [Suspect]
     Indication: CONTRACEPTION
     Dosage: UNK
     Route: 048
     Dates: start: 2012
  2. ROACUTAN [Concomitant]
     Indication: ACNE
     Dosage: UNK
     Dates: start: 201210
  3. AMOXICILIN [Concomitant]
     Indication: OROPHARYNGEAL PAIN
     Dosage: UNK

REACTIONS (4)
  - Metrorrhagia [Unknown]
  - Inappropriate schedule of drug administration [Unknown]
  - Abnormal withdrawal bleeding [Unknown]
  - Product physical issue [Unknown]
